FAERS Safety Report 12118798 (Version 2)
Quarter: 2016Q2

REPORT INFORMATION
  Report Type: Spontaneous
  Country: US (occurrence: US)
  Receive Date: 20160226
  Receipt Date: 20160411
  Transmission Date: 20160815
  Serious: Yes (Hospitalization, Other)
  Sender: FDA-Public Use
  Company Number: US-BEH-2016059153

PATIENT
  Age: 69 Year
  Sex: Male
  Weight: 87 kg

DRUGS (21)
  1. HIZENTRA [Suspect]
     Active Substance: HUMAN IMMUNOGLOBULIN G
     Dosage: FREQUENCY: AS DIRECTED
     Route: 058
     Dates: start: 20160129
  2. HIZENTRA [Suspect]
     Active Substance: HUMAN IMMUNOGLOBULIN G
  3. MONTELUKAST [Concomitant]
     Active Substance: MONTELUKAST SODIUM
  4. LISINOPRIL. [Concomitant]
     Active Substance: LISINOPRIL
  5. OMEPRAZOLE. [Concomitant]
     Active Substance: OMEPRAZOLE
  6. XOPENEX [Concomitant]
     Active Substance: LEVALBUTEROL HYDROCHLORIDE
  7. EPIPEN [Concomitant]
     Active Substance: EPINEPHRINE
  8. PREDNISONE. [Concomitant]
     Active Substance: PREDNISONE
  9. HIZENTRA [Suspect]
     Active Substance: HUMAN IMMUNOGLOBULIN G
     Indication: IMMUNODEFICIENCY COMMON VARIABLE
  10. VITAMIN D [Concomitant]
     Active Substance: CHOLECALCIFEROL
  11. GUAIFENESIN. [Concomitant]
     Active Substance: GUAIFENESIN
  12. ATORVASTATIN [Concomitant]
     Active Substance: ATORVASTATIN
  13. LEVAQUIN [Concomitant]
     Active Substance: LEVOFLOXACIN
  14. POTASSIUM [Concomitant]
     Active Substance: POTASSIUM
  15. LEVOTHYROXINE. [Concomitant]
     Active Substance: LEVOTHYROXINE
  16. DIPHENHYDRAMINE. [Concomitant]
     Active Substance: DIPHENHYDRAMINE
  17. DESMOPRESSIN [Concomitant]
     Active Substance: DESMOPRESSIN
  18. ADVAIR HFA [Concomitant]
     Active Substance: FLUTICASONE PROPIONATE\SALMETEROL XINAFOATE
  19. CARTIA XT [Concomitant]
     Active Substance: DILTIAZEM HYDROCHLORIDE
  20. ACETAMINOPHEN. [Concomitant]
     Active Substance: ACETAMINOPHEN
  21. ALENDRONATE [Concomitant]
     Active Substance: ALENDRONATE SODIUM

REACTIONS (4)
  - Atrial flutter [Recovered/Resolved]
  - Heart rate irregular [Recovered/Resolved]
  - Pneumonia [Unknown]
  - Pelvic pain [Unknown]

NARRATIVE: CASE EVENT DATE: 20160129
